FAERS Safety Report 16974886 (Version 2)
Quarter: 2020Q2

REPORT INFORMATION
  Report Type: Report from Study
  Country: US (occurrence: US)
  Receive Date: 20191030
  Receipt Date: 20200408
  Transmission Date: 20200713
  Serious: Yes (Other)
  Sender: FDA-Public Use
  Company Number: US-SA-2018SA037690

PATIENT
  Age: 42 Year
  Sex: Male

DRUGS (2)
  1. ALEMTUZUMAB [Suspect]
     Active Substance: ALEMTUZUMAB
     Indication: MULTIPLE SCLEROSIS
     Dosage: 12 MG,QD
     Route: 041
     Dates: start: 20180123, end: 20180125
  2. ALEMTUZUMAB [Suspect]
     Active Substance: ALEMTUZUMAB
     Dosage: 12 MG, QD
     Route: 041
     Dates: start: 20151027

REACTIONS (4)
  - Rash macular [Recovered/Resolved]
  - Rash [Recovered/Resolved]
  - Rash pruritic [Recovered/Resolved]
  - Malignant melanoma stage I [Unknown]

NARRATIVE: CASE EVENT DATE: 20180125
